FAERS Safety Report 8175774-7 (Version None)
Quarter: 2012Q1

REPORT INFORMATION
  Report Type: 
  Country: None (occurrence: None)
  Receive Date: 20120228
  Receipt Date: 20120228
  Transmission Date: 20120608
  Serious: Yes (Other)
  Sender: FDA-Public Use
  Company Number: None

PATIENT
  Sex: Female

DRUGS (2)
  1. FENTANYL [Suspect]
     Indication: RADICULOPATHY
     Dosage: 50MCG CURRENTLY 75 MCG + 100 MCG PRIOR TO 1/7/2009
  2. FENTANYL [Suspect]
     Indication: SPINAL OSTEOARTHRITIS
     Dosage: 50MCG CURRENTLY 75 MCG + 100 MCG PRIOR TO 1/7/2009

REACTIONS (2)
  - PRODUCT SUBSTITUTION ISSUE [None]
  - PRODUCT ADHESION ISSUE [None]
